FAERS Safety Report 9455326 (Version 2)
Quarter: 2016Q2

REPORT INFORMATION
  Report Type: Spontaneous
  Country: FR (occurrence: FR)
  Receive Date: 20130813
  Receipt Date: 20160530
  Transmission Date: 20160815
  Serious: Yes (Other)
  Sender: FDA-Public Use
  Company Number: FR-JNJFOC-20130610570

PATIENT
  Age: 42 Year
  Sex: Female

DRUGS (2)
  1. XEPLION [Suspect]
     Active Substance: PALIPERIDONE PALMITATE
     Indication: PRODUCT USED FOR UNKNOWN INDICATION
     Route: 030
  2. XEPLION [Suspect]
     Active Substance: PALIPERIDONE PALMITATE
     Indication: PRODUCT USED FOR UNKNOWN INDICATION
     Route: 030

REACTIONS (13)
  - Poor peripheral circulation [Unknown]
  - Hypoaesthesia [Unknown]
  - Pruritus [Unknown]
  - Insomnia [Unknown]
  - Paraesthesia [Unknown]
  - Visual acuity reduced [Unknown]
  - Fatigue [Unknown]
  - Feeling hot [Unknown]
  - Petit mal epilepsy [Unknown]
  - Burning sensation [Unknown]
  - Emotional distress [Unknown]
  - Asthenia [Unknown]
  - Amnesia [Unknown]
